FAERS Safety Report 13285083 (Version 1)
Quarter: 2017Q1

REPORT INFORMATION
  Report Type: Spontaneous
  Country: US (occurrence: US)
  Receive Date: 20170301
  Receipt Date: 20170301
  Transmission Date: 20170428
  Serious: No
  Sender: FDA-Public Use
  Company Number: US-ALLERGAN-1671731US

PATIENT
  Sex: Female

DRUGS (1)
  1. NOR-QD [Suspect]
     Active Substance: NORETHINDRONE
     Indication: POSTPARTUM DISORDER
     Dosage: UNK
     Route: 065
     Dates: start: 2016

REACTIONS (3)
  - Inappropriate schedule of drug administration [Unknown]
  - Condition aggravated [Unknown]
  - Off label use [Unknown]
